FAERS Safety Report 17925964 (Version 1)
Quarter: 2020Q2

REPORT INFORMATION
  Report Type: Spontaneous
  Country: US (occurrence: US)
  Receive Date: 20200622
  Receipt Date: 20200622
  Transmission Date: 20200714
  Serious: No
  Sender: FDA-Public Use
  Company Number: US-MATRIXX INITIATIVES, INC.-2086499

PATIENT
  Age: 77 Year
  Sex: Male
  Weight: 90.91 kg

DRUGS (1)
  1. ZICAM COLD REMEDY NASAL SPRAY [Suspect]
     Active Substance: HOMEOPATHICS
     Indication: NASOPHARYNGITIS
     Route: 045
     Dates: start: 20200619, end: 20200619

REACTIONS (2)
  - Anosmia [None]
  - Ageusia [None]
